FAERS Safety Report 11664532 (Version 1)
Quarter: 2015Q4

REPORT INFORMATION
  Report Type: Spontaneous
  Country: US (occurrence: US)
  Receive Date: 20151027
  Receipt Date: 20151027
  Transmission Date: 20160304
  Serious: No
  Sender: FDA-Public Use
  Company Number: US-ELI_LILLY_AND_COMPANY-US200912000520

PATIENT
  Sex: Female

DRUGS (5)
  1. XALATAN [Concomitant]
     Active Substance: LATANOPROST
     Indication: GLAUCOMA
  2. FORTEO [Suspect]
     Active Substance: TERIPARATIDE
     Dosage: 20 UG, DAILY (1/D)
     Dates: start: 200907
  3. VITAMIN D [Concomitant]
     Active Substance: CHOLECALCIFEROL
     Dosage: 800 MG, UNK
  4. OMEPRAZOLE. [Concomitant]
     Active Substance: OMEPRAZOLE
  5. CRESTOR [Concomitant]
     Active Substance: ROSUVASTATIN CALCIUM

REACTIONS (5)
  - Malaise [Recovered/Resolved]
  - Pyrexia [Recovered/Resolved]
  - Blood calcium increased [Recovered/Resolved]
  - Fatigue [Recovering/Resolving]
  - Abdominal discomfort [Recovering/Resolving]

NARRATIVE: CASE EVENT DATE: 2009
